FAERS Safety Report 5587933-8 (Version None)
Quarter: 2008Q1

REPORT INFORMATION
  Report Type: 
  Country: None (occurrence: None)
  Receive Date: 20080111
  Receipt Date: 20070709
  Transmission Date: 20080703
  Serious: No
  Sender: FDA-Public Use
  Company Number: US-KINGPHARMUSA00001-K200700870

PATIENT

DRUGS (1)
  1. CORGARD [Suspect]
     Indication: HYPERTENSION
     Dates: start: 20060101, end: 20060101

REACTIONS (12)
  - ANXIETY [None]
  - ASTHENIA [None]
  - BLOOD PRESSURE DECREASED [None]
  - DEHYDRATION [None]
  - DRUG INEFFECTIVE [None]
  - DYSPNOEA [None]
  - FALL [None]
  - FATIGUE [None]
  - INSOMNIA [None]
  - PANIC ATTACK [None]
  - POLLAKIURIA [None]
  - SYNCOPE [None]
